FAERS Safety Report 10223870 (Version 1)
Quarter: 2014Q2

REPORT INFORMATION
  Report Type: Spontaneous
  Country: US (occurrence: US)
  Receive Date: 20140609
  Receipt Date: 20140609
  Transmission Date: 20141212
  Serious: Yes (Death, Hospitalization)
  Sender: FDA-Public Use
  Company Number: US-JNJFOC-20140603270

PATIENT
  Age: 6 Decade
  Sex: Male

DRUGS (2)
  1. XARELTO [Suspect]
     Indication: DEEP VEIN THROMBOSIS
     Route: 048
     Dates: start: 201401, end: 201401
  2. XARELTO [Suspect]
     Indication: DEEP VEIN THROMBOSIS
     Route: 048
     Dates: start: 201401, end: 201401

REACTIONS (9)
  - Haemorrhage [Fatal]
  - Nasal ulcer [Unknown]
  - Haemoptysis [Unknown]
  - Tachycardia [Unknown]
  - Dyspnoea [Unknown]
  - Pulmonary embolism [Unknown]
  - Cardio-respiratory arrest [Unknown]
  - Unresponsive to stimuli [Unknown]
  - Medication error [Unknown]
